FAERS Safety Report 8964058 (Version 1)
Quarter: 2012Q4

REPORT INFORMATION
  Report Type: 
  Country: DK (occurrence: DK)
  Receive Date: 20121214
  Receipt Date: 20121214
  Transmission Date: 20130627
  Serious: Yes (Hospitalization)
  Sender: FDA-Public Use
  Company Number: DK-JNJFOC-20121206721

PATIENT
  Age: 53 Year
  Sex: Female
  Weight: 66 kg

DRUGS (1)
  1. REMICADE [Suspect]
     Indication: SPONDYLOARTHROPATHY
     Dosage: frequency: at week 0, 2, 6 and every 8 weeks
     Route: 042
     Dates: start: 20120410, end: 20120906

REACTIONS (2)
  - Liver disorder [Unknown]
  - Drug ineffective [Unknown]
